FAERS Safety Report 13093055 (Version 1)
Quarter: 2017Q1

REPORT INFORMATION
  Report Type: Spontaneous
  Country: US (occurrence: US)
  Receive Date: 20170106
  Receipt Date: 20170106
  Transmission Date: 20170428
  Serious: No
  Sender: FDA-Public Use
  Company Number: US-PFM-2016-02865

PATIENT

DRUGS (1)
  1. HEMANGEOL [Suspect]
     Active Substance: PROPRANOLOL HYDROCHLORIDE
     Indication: HAEMANGIOMA
     Dosage: 1.8 ML, BID (2/DAY)
     Route: 048
     Dates: start: 20161007

REACTIONS (2)
  - Vomiting [Not Recovered/Not Resolved]
  - Food allergy [None]

NARRATIVE: CASE EVENT DATE: 2016
